FAERS Safety Report 9691514 (Version 2)
Quarter: 2013Q4

REPORT INFORMATION
  Report Type: Spontaneous
  Country: US (occurrence: US)
  Receive Date: 20131115
  Receipt Date: 20131122
  Transmission Date: 20140711
  Serious: Yes (Other)
  Sender: FDA-Public Use
  Company Number: US-009507513-1311USA005498

PATIENT
  Age: 28 Year
  Sex: Female

DRUGS (4)
  1. SINGULAIR [Suspect]
     Indication: ASTHMA
     Route: 048
  2. SINGULAIR [Suspect]
     Indication: MULTIPLE ALLERGIES
  3. ALBUTEROL [Concomitant]
  4. CETIRIZINE HYDROCHLORIDE [Concomitant]

REACTIONS (3)
  - Asthma [Unknown]
  - Hypersensitivity [Unknown]
  - Product substitution issue [Unknown]
